FAERS Safety Report 8070745-3 (Version None)
Quarter: 2012Q1

REPORT INFORMATION
  Report Type: 
  Country: None (occurrence: None)
  Receive Date: 20120125
  Receipt Date: 20120120
  Transmission Date: 20120608
  Serious: No
  Sender: FDA-Public Use
  Company Number: US-PFIZER INC-2009303434

PATIENT
  Sex: Female

DRUGS (3)
  1. NORVASC [Suspect]
     Dosage: 5 MG, UNK
  2. NORVASC [Suspect]
     Dosage: 2.5 MG, UNK
  3. ACCUPRIL [Suspect]
     Dosage: UNK

REACTIONS (2)
  - HYPERSENSITIVITY [None]
  - SINUS DISORDER [None]
